FAERS Safety Report 6373765-X (Version None)
Quarter: 2009Q3

REPORT INFORMATION
  Report Type: 
  Country: None (occurrence: None)
  Receive Date: 20090924
  Receipt Date: 20090714
  Transmission Date: 20100115
  Serious: Yes (Other)
  Sender: FDA-Public Use
  Company Number: US-ASTRAZENECA-2009UW13441

PATIENT
  Age: 40 Year
  Sex: Male
  Weight: 72.1 kg

DRUGS (6)
  1. SEROQUEL [Suspect]
     Indication: SCHIZOPHRENIA
     Route: 048
     Dates: start: 20030101, end: 20040101
  2. RISPERDAL [Concomitant]
     Dates: start: 20040601, end: 20050501
  3. ZYPREXA [Concomitant]
     Dates: start: 20040201, end: 20040901
  4. ABILIFY [Concomitant]
     Dates: start: 20030101, end: 20050101
  5. CLOZARIL [Concomitant]
     Dates: start: 19970101, end: 20010101
  6. GEODON [Concomitant]
     Dates: start: 20010101, end: 20050101

REACTIONS (3)
  - DIABETES MELLITUS [None]
  - HYPERTHYROIDISM [None]
  - TARDIVE DYSKINESIA [None]
